FAERS Safety Report 12942451 (Version 2)
Quarter: 2017Q2

REPORT INFORMATION
  Report Type: Spontaneous
  Country: US (occurrence: US)
  Receive Date: 20161115
  Receipt Date: 20170407
  Transmission Date: 20170830
  Serious: No
  Sender: FDA-Public Use
  Company Number: US-JNJFOC-20161020594

PATIENT
  Sex: Male

DRUGS (4)
  1. RISPERDAL [Suspect]
     Active Substance: RISPERIDONE
     Indication: PRODUCT USED FOR UNKNOWN INDICATION
     Route: 048
     Dates: start: 2001, end: 2011
  2. RISPERDAL CONSTA [Suspect]
     Active Substance: RISPERIDONE
     Indication: PRODUCT USED FOR UNKNOWN INDICATION
     Route: 030
     Dates: start: 201609
  3. INVEGA SUSTENNA [Suspect]
     Active Substance: PALIPERIDONE PALMITATE
     Indication: PRODUCT USED FOR UNKNOWN INDICATION
     Route: 030
     Dates: start: 201608, end: 201609
  4. RISPERDAL CONSTA [Suspect]
     Active Substance: RISPERIDONE
     Indication: PRODUCT USED FOR UNKNOWN INDICATION
     Route: 030
     Dates: start: 2011, end: 201608

REACTIONS (20)
  - Unevaluable event [Unknown]
  - Anal incontinence [Unknown]
  - Drug dose omission [Unknown]
  - Drug ineffective [Unknown]
  - Dyspnoea [Unknown]
  - Breast enlargement [Unknown]
  - Irritability [Unknown]
  - Hallucination, auditory [Unknown]
  - Fatigue [Unknown]
  - Somnolence [Unknown]
  - Weight fluctuation [Unknown]
  - Thyroid disorder [Unknown]
  - Product label issue [Unknown]
  - Insomnia [Unknown]
  - Feeling abnormal [Unknown]
  - Drooling [Unknown]
  - Decreased interest [Unknown]
  - Disturbance in attention [Unknown]
  - Physical assault [Unknown]
  - Imprisonment [Recovered/Resolved]

NARRATIVE: CASE EVENT DATE: 2011
